FAERS Safety Report 7756789-7 (Version None)
Quarter: 2011Q3

REPORT INFORMATION
  Report Type: 
  Country: None (occurrence: None)
  Receive Date: 20110916
  Receipt Date: 20110909
  Transmission Date: 20111222
  Serious: Yes (Other)
  Sender: FDA-Public Use
  Company Number: PHHY2011US81259

PATIENT
  Age: 60 Year
  Sex: Female

DRUGS (1)
  1. HYDRALAZINE HCL [Suspect]

REACTIONS (2)
  - ACUTE FEBRILE NEUTROPHILIC DERMATOSIS [None]
  - LUPUS-LIKE SYNDROME [None]
